FAERS Safety Report 5960274-2 (Version None)
Quarter: 2008Q4

REPORT INFORMATION
  Report Type: 
  Country: None (occurrence: None)
  Receive Date: 20081120
  Receipt Date: 20081117
  Transmission Date: 20090506
  Serious: Yes (Death)
  Sender: FDA-Public Use
  Company Number: US-ASTRAZENECA-2008UW12626

PATIENT
  Sex: Male

DRUGS (3)
  1. SEROQUEL [Suspect]
     Route: 048
  2. PAXIL [Concomitant]
  3. KLONOPIN [Concomitant]

REACTIONS (5)
  - ANGER [None]
  - DEATH [None]
  - SLEEP DISORDER [None]
  - TREMOR [None]
  - WEIGHT INCREASED [None]
